FAERS Safety Report 9100266 (Version 1)
Quarter: 2013Q1

REPORT INFORMATION
  Report Type: Spontaneous
  Country: AU (occurrence: AU)
  Receive Date: 20130215
  Receipt Date: 20130215
  Transmission Date: 20140127
  Serious: Yes (Hospitalization)
  Sender: FDA-Public Use
  Company Number: AU-MERCK-1302AUS005184

PATIENT
  Age: 57 Year
  Sex: Male

DRUGS (9)
  1. EZETROL [Suspect]
  2. DIABEX [Suspect]
     Dosage: 2 G, UNK
     Route: 048
  3. CRESTOR [Suspect]
     Dosage: 40 MG, UNK
     Route: 048
  4. DIAMICRON [Suspect]
  5. NEXIUM [Suspect]
     Dosage: 20 MG, UNK
     Route: 048
  6. PRADAXA [Suspect]
     Indication: ATRIAL FIBRILLATION
     Dosage: 150 MG, UNK
     Dates: end: 201210
  7. RAMIPRIL [Suspect]
     Dosage: 10 MG, UNK
     Route: 048
  8. ZOLOFT [Suspect]
     Dosage: 100 MG, UNK
  9. CARTIA [Suspect]

REACTIONS (3)
  - Pancreatitis acute [Unknown]
  - Pain [Recovered/Resolved]
  - Chest pain [Recovered/Resolved]
